FAERS Safety Report 7737535-X (Version None)
Quarter: 2011Q3

REPORT INFORMATION
  Report Type: 
  Country: None (occurrence: None)
  Receive Date: 20110817
  Receipt Date: 20110525
  Transmission Date: 20111222
  Serious: Yes (Hospitalization, Other)
  Sender: FDA-Public Use
  Company Number: 201110103

PATIENT
  Sex: Male

DRUGS (2)
  1. ORAL BACLOFEN [Concomitant]
  2. LIORESAL [Suspect]
     Indication: MUSCLE SPASTICITY
     Dosage: 343 MCG, DAILY, INTRATHECAL
     Route: 037

REACTIONS (5)
  - MUSCULOSKELETAL STIFFNESS [None]
  - MALAISE [None]
  - PARAESTHESIA [None]
  - IMPLANT SITE INFECTION [None]
  - THERAPEUTIC RESPONSE DECREASED [None]
